FAERS Safety Report 15470173 (Version 3)
Quarter: 2020Q1

REPORT INFORMATION
  Report Type: Report from Study
  Country: IN (occurrence: IN)
  Receive Date: 20181005
  Receipt Date: 20200330
  Transmission Date: 20200409
  Serious: Yes (Death, Hospitalization)
  Sender: FDA-Public Use
  Company Number: IN-INCYTE CORPORATION-2017IN010723

PATIENT

DRUGS (3)
  1. JAKAVI [Suspect]
     Active Substance: RUXOLITINIB
     Indication: MYELOFIBROSIS
     Dosage: 10 MG, BID (TWICE A DAY)
     Route: 048
     Dates: start: 20170925
  2. JAKAVI [Suspect]
     Active Substance: RUXOLITINIB
     Dosage: 5 M, BID
     Route: 048
     Dates: start: 20180406, end: 20180803
  3. JAKAVI [Suspect]
     Active Substance: RUXOLITINIB
     Dosage: 10 MG, BID
     Route: 048
     Dates: start: 20180804

REACTIONS (5)
  - Fall [Fatal]
  - Myelofibrosis [Fatal]
  - Haemorrhage [Fatal]
  - Anaemia [Recovered/Resolved]
  - Multiple organ dysfunction syndrome [Fatal]

NARRATIVE: CASE EVENT DATE: 20171128
